FAERS Safety Report 17997574 (Version 1)
Quarter: 2020Q3

REPORT INFORMATION
  Report Type: Spontaneous
  Country: GB (occurrence: GB)
  Receive Date: 20200708
  Receipt Date: 20200708
  Transmission Date: 20201103
  Serious: Yes (Death, Other)
  Sender: FDA-Public Use
  Company Number: GB-BAUSCH-BL-2020-018647

PATIENT
  Age: 53 Year
  Sex: Female

DRUGS (8)
  1. DIGOXIN. [Concomitant]
     Active Substance: DIGOXIN
     Indication: PRODUCT USED FOR UNKNOWN INDICATION
     Dates: end: 196910
  2. DIGOXIN. [Concomitant]
     Active Substance: DIGOXIN
     Dosage: SECOND POSTOPERATIVE DAY, RESTARTED
     Dates: start: 19691030
  3. HYDROCORTISONE. [Suspect]
     Active Substance: HYDROCORTISONE
     Indication: BRAIN OEDEMA
     Dosage: TOTAL DOSAGE: 4 GRAMS
     Route: 042
     Dates: start: 1969, end: 196911
  4. SLOW K [Concomitant]
     Active Substance: POTASSIUM CHLORIDE
     Indication: PRODUCT USED FOR UNKNOWN INDICATION
     Dates: start: 19691030
  5. CHLORTHALIDONE. [Suspect]
     Active Substance: CHLORTHALIDONE
     Indication: PRODUCT USED FOR UNKNOWN INDICATION
     Route: 048
  6. DIPHENYLHYDANTOIN [Suspect]
     Active Substance: PHENYTOIN
     Indication: VENTRICULAR EXTRASYSTOLES
     Dosage: FIVE INTRAVENOUS INJECTIONS, TOTAL DOSAGE: 1.2 GRAMS
     Route: 042
     Dates: start: 19691029
  7. FRUSEMIDE [Suspect]
     Active Substance: FUROSEMIDE
     Indication: PRODUCT USED FOR UNKNOWN INDICATION
     Dosage: SECOND POSTOPERATIVE DAY, TOTAL DOSAGE (280 MG)
     Route: 042
     Dates: start: 19691030
  8. WARFARIN [Concomitant]
     Active Substance: WARFARIN
     Indication: PRODUCT USED FOR UNKNOWN INDICATION

REACTIONS (2)
  - Diabetic hyperosmolar coma [Not Recovered/Not Resolved]
  - Hyperglycaemic hyperosmolar nonketotic syndrome [Not Recovered/Not Resolved]

NARRATIVE: CASE EVENT DATE: 196911
